FAERS Safety Report 5575733-4 (Version None)
Quarter: 2007Q4

REPORT INFORMATION
  Report Type: 
  Country: None (occurrence: None)
  Receive Date: 20071221
  Receipt Date: 20071213
  Transmission Date: 20080405
  Serious: Yes (Hospitalization)
  Sender: FDA-Public Use
  Company Number: E2020-01999-SPO-JP

PATIENT
  Age: 83 Year
  Sex: Female
  Weight: 57.3 kg

DRUGS (9)
  1. ARICEPT [Suspect]
     Indication: DEMENTIA ALZHEIMER'S TYPE
     Dosage: 5 MG, 1 IN 1 D, ORAL
     Route: 048
     Dates: start: 20020314, end: 20071115
  2. ASPIRIN [Concomitant]
  3. LANIRAPID (METILDIGOXIN) [Concomitant]
  4. LASIX [Concomitant]
  5. ORIVATE (OXIBUTYNIN HYDROCHLORIDE)(OXYBUTYNIN YDROCHLORIDE) [Concomitant]
  6. MAGMITT (MAGNESIUM OXIDE)(MAGNESIUM OXIDE) [Concomitant]
  7. TIAPRIAM (TIAPRIDE HYDROCHLORIDE)(TIAPRIDE HYDROCHLORIDE) [Concomitant]
  8. GRISETIN V(GRISEOFULVIN)(GRISEOFULVIN) [Concomitant]
  9. NITRODERM TTS (NITROGLYCERIN)(GLYCERYL TRINITRATE) [Concomitant]

REACTIONS (2)
  - DECREASED APPETITE [None]
  - RHABDOMYOLYSIS [None]
